FAERS Safety Report 5952918-6 (Version None)
Quarter: 2008Q4

REPORT INFORMATION
  Report Type: 
  Country: None (occurrence: None)
  Receive Date: 20081114
  Receipt Date: 20081111
  Transmission Date: 20090506
  Serious: Yes (Death, Hospitalization, Disabling)
  Sender: FDA-Public Use
  Company Number: US-ASTRAZENECA-2006UW25759

PATIENT
  Age: 485 Month
  Sex: Male
  Weight: 112 kg

DRUGS (6)
  1. SEROQUEL [Suspect]
     Indication: SCHIZOPHRENIA
     Dosage: 100 MG
     Route: 048
     Dates: start: 20020101, end: 20031001
  2. RISPERDAL [Suspect]
     Dates: end: 20000101
  3. ZYPREXA [Suspect]
     Dates: end: 20030101
  4. ABILIFY [Concomitant]
  5. HALDOL [Concomitant]
     Dates: start: 19810101, end: 20000101
  6. TRILAFON [Concomitant]
     Dates: end: 20000101

REACTIONS (4)
  - DEATH [None]
  - DIABETES MELLITUS [None]
  - HEAD INJURY [None]
  - MULTIPLE INJURIES [None]
